FAERS Safety Report 8083773-9 (Version None)
Quarter: 2012Q1

REPORT INFORMATION
  Report Type: 
  Country: None (occurrence: None)
  Receive Date: 20120128
  Receipt Date: 20110201
  Transmission Date: 20120608
  Serious: No
  Sender: FDA-Public Use
  Company Number: US-ABBOTT-11P-163-0702195-00

PATIENT
  Age: 23 Year
  Sex: Female

DRUGS (2)
  1. SCHEDULED PHLEBOTOMY TREATMENTS AND IRON LEVEL LAB DRAWS [Concomitant]
     Indication: PRODUCT USED FOR UNKNOWN INDICATION
  2. HUMIRA [Suspect]
     Indication: PSORIASIS
     Dates: start: 20100601

REACTIONS (11)
  - FATIGUE [None]
  - VAGINAL ABSCESS [None]
  - OEDEMA PERIPHERAL [None]
  - ERYTHEMA [None]
  - SKIN TIGHTNESS [None]
  - RHINITIS [None]
  - COUGH [None]
  - PURULENT DISCHARGE [None]
  - BLISTER [None]
  - NASAL CONGESTION [None]
  - CHILLS [None]
